FAERS Safety Report 7456279-5 (Version None)
Quarter: 2011Q2

REPORT INFORMATION
  Report Type: 
  Country: None (occurrence: None)
  Receive Date: 20110503
  Receipt Date: 20110321
  Transmission Date: 20111010
  Serious: Yes (Hospitalization, Other)
  Sender: FDA-Public Use
  Company Number: US-BAYER-2010-002630

PATIENT
  Age: 25 Year
  Sex: Female

DRUGS (5)
  1. YASMIN [Suspect]
     Indication: PRODUCT USED FOR UNKNOWN INDICATION
     Dosage: UNK
     Route: 048
     Dates: start: 19970101, end: 20090101
  2. ANTIBIOTICS [Concomitant]
     Indication: UNEVALUABLE EVENT
  3. ANTIBIOTICS [Concomitant]
     Indication: INFLUENZA
  4. MAXIFED [Concomitant]
     Indication: INFLUENZA
  5. PREVACID [Concomitant]
     Dosage: UNK UNK, PRN

REACTIONS (2)
  - CHOLECYSTITIS [None]
  - GALLBLADDER DISORDER [None]
